FAERS Safety Report 11717727 (Version 1)
Quarter: 2015Q4

REPORT INFORMATION
  Report Type: Spontaneous
  Country: US (occurrence: US)
  Receive Date: 20151110
  Receipt Date: 20151110
  Transmission Date: 20160304
  Serious: No
  Sender: FDA-Public Use
  Company Number: US-009507513-1511USA004214

PATIENT
  Sex: Male

DRUGS (1)
  1. NITRO-DUR [Suspect]
     Active Substance: NITROGLYCERIN
     Indication: ANGINA PECTORIS
     Dosage: DOSE/FREQUENCY: ONE PATCH
     Route: 062

REACTIONS (1)
  - Headache [Unknown]
